FAERS Safety Report 13689287 (Version 3)
Quarter: 2018Q1

REPORT INFORMATION
  Report Type: Spontaneous
  Country: US (occurrence: US)
  Receive Date: 20170626
  Receipt Date: 20180319
  Transmission Date: 20180508
  Serious: No
  Sender: FDA-Public Use
  Company Number: US-PFIZER INC-2017270401

PATIENT
  Age: 11 Year
  Sex: Male

DRUGS (1)
  1. GENOTROPIN [Suspect]
     Active Substance: SOMATROPIN
     Dosage: 1.1 MG, UNK
     Dates: start: 20170425

REACTIONS (5)
  - Device issue [Unknown]
  - Arthropathy [Unknown]
  - Injection site mass [Unknown]
  - Incorrect dose administered [Unknown]
  - Pain in extremity [Unknown]
